FAERS Safety Report 17294822 (Version 4)
Quarter: 2020Q1

REPORT INFORMATION
  Report Type: Spontaneous
  Country: US (occurrence: US)
  Receive Date: 20200121
  Receipt Date: 20200219
  Transmission Date: 20200409
  Serious: Yes (Other)
  Sender: FDA-Public Use
  Company Number: US-009507513-2001USA005463

PATIENT
  Sex: Female
  Weight: 144.24 kg

DRUGS (1)
  1. NEXPLANON [Suspect]
     Active Substance: ETONOGESTREL
     Dosage: 1 IMPLANT
     Route: 059
     Dates: start: 201710

REACTIONS (10)
  - Acanthosis nigricans [Unknown]
  - Bipolar disorder [Unknown]
  - Dry skin [Unknown]
  - Device breakage [Not Recovered/Not Resolved]
  - Schizophrenia [Unknown]
  - Cholelithiasis [Unknown]
  - Skin warm [Unknown]
  - Obesity [Unknown]
  - Device kink [Not Recovered/Not Resolved]
  - Abdominal pain upper [Unknown]

NARRATIVE: CASE EVENT DATE: 2019
